FAERS Safety Report 11437339 (Version 1)
Quarter: 2015Q3

REPORT INFORMATION
  Report Type: Spontaneous
  Country: US (occurrence: US)
  Receive Date: 20150821
  Receipt Date: 20150821
  Transmission Date: 20151125
  Serious: No
  Sender: FDA-Public Use
  Company Number: US-ELI_LILLY_AND_COMPANY-US200704002026

PATIENT
  Age: 47 Year
  Sex: Female

DRUGS (6)
  1. ESTROGEN NOS [Concomitant]
     Active Substance: ESTROGENS
  2. TESTOSTERONE. [Concomitant]
     Active Substance: TESTOSTERONE
  3. CYMBALTA [Suspect]
     Active Substance: DULOXETINE HYDROCHLORIDE
     Indication: FATIGUE
     Dosage: 30 MG, EACH MORNING
     Dates: start: 20070405
  4. NEURONTIN [Concomitant]
     Active Substance: GABAPENTIN
     Dosage: 600 MG, 3/D
     Dates: start: 20070405
  5. PROMETRIUM [Concomitant]
     Active Substance: PROGESTERONE
  6. ALDACTAZIDE [Concomitant]
     Active Substance: HYDROCHLOROTHIAZIDE\SPIRONOLACTONE

REACTIONS (10)
  - Hypertension [Unknown]
  - Diarrhoea [Unknown]
  - Fatigue [Unknown]
  - Chills [Unknown]
  - Disorientation [Unknown]
  - Influenza like illness [Unknown]
  - Erythema [Unknown]
  - Nausea [Unknown]
  - Insomnia [Unknown]
  - Confusional state [Unknown]

NARRATIVE: CASE EVENT DATE: 20070405
